FAERS Safety Report 5873772-7 (Version None)
Quarter: 2008Q3

REPORT INFORMATION
  Report Type: 
  Country: None (occurrence: None)
  Receive Date: 20080904
  Receipt Date: 20080904
  Transmission Date: 20090109
  Serious: Yes (Hospitalization)
  Sender: FDA-Public Use
  Company Number: None

PATIENT
  Sex: Male
  Weight: 57 kg

DRUGS (1)
  1. NEXAVAR [Suspect]
     Indication: HEPATIC NEOPLASM MALIGNANT
     Dosage: 400 MG BID PO
     Route: 048
     Dates: start: 20080818, end: 20080819

REACTIONS (4)
  - ABDOMINAL PAIN UPPER [None]
  - ANGIOEDEMA [None]
  - DYSPNOEA [None]
  - OROPHARYNGEAL BLISTERING [None]
